FAERS Safety Report 7657132-4 (Version None)
Quarter: 2011Q3

REPORT INFORMATION
  Report Type: 
  Country: None (occurrence: None)
  Receive Date: 20110804
  Receipt Date: 20110413
  Transmission Date: 20111222
  Serious: No
  Sender: FDA-Public Use
  Company Number: US-GLAXOSMITHKLINE-A0922852A

PATIENT
  Sex: Female

DRUGS (3)
  1. ADVAIR DISKUS 100/50 [Suspect]
     Indication: BRONCHITIS
     Route: 055
     Dates: start: 20110404
  2. ANTIBIOTIC [Concomitant]
  3. SUDAFED 12 HOUR [Concomitant]

REACTIONS (3)
  - COUGH [None]
  - MALAISE [None]
  - THROAT IRRITATION [None]
